FAERS Safety Report 8615682-8 (Version None)
Quarter: 2012Q3

REPORT INFORMATION
  Report Type: 
  Country: None (occurrence: None)
  Receive Date: 20120823
  Receipt Date: 20120813
  Transmission Date: 20120928
  Serious: Yes (Other)
  Sender: FDA-Public Use
  Company Number: US-JNJFOC-20120808361

PATIENT
  Sex: Female
  Weight: 44.45 kg

DRUGS (2)
  1. TOPIRAMATE [Suspect]
     Indication: MIGRAINE PROPHYLAXIS
     Dosage: 25 MG TWICE A DAY
     Route: 048
  2. TOPAMAX [Suspect]
     Indication: MIGRAINE PROPHYLAXIS
     Dosage: 25 MG TWICE A DAY
     Route: 048
     Dates: start: 19970101

REACTIONS (15)
  - ANTINUCLEAR ANTIBODY POSITIVE [None]
  - PERIPHERAL COLDNESS [None]
  - WHITE BLOOD CELL COUNT DECREASED [None]
  - AUTOIMMUNE DISORDER [None]
  - HEADACHE [None]
  - HYPOAESTHESIA [None]
  - MYALGIA [None]
  - NAUSEA [None]
  - ARTHRALGIA [None]
  - HEPATIC ENZYME INCREASED [None]
  - OEDEMA PERIPHERAL [None]
  - GASTROINTESTINAL DISORDER [None]
  - DRY SKIN [None]
  - PRURITUS [None]
  - NASOPHARYNGITIS [None]
